FAERS Safety Report 5205968-1 (Version None)
Quarter: 2006Q4

REPORT INFORMATION
  Report Type: 
  Country: None (occurrence: None)
  Receive Date: 20061027
  Receipt Date: 20060712
  Transmission Date: 20070319
  Serious: No
  Sender: FDA-Public Use
  Company Number: 200615981US

PATIENT
  Age: 75 Year
  Sex: Male

DRUGS (1)
  1. KETEK [Suspect]
     Indication: RESPIRATORY DISORDER

REACTIONS (1)
  - HEADACHE [None]
